FAERS Safety Report 25509546 (Version 2)
Quarter: 2025Q3

REPORT INFORMATION
  Report Type: Spontaneous
  Country: EU (occurrence: EU)
  Receive Date: 20250703
  Receipt Date: 20250903
  Transmission Date: 20251021
  Serious: Yes (Hospitalization, Other)
  Sender: MERCK SHARP & DOHME LLC
  Company Number: EU-009507513-2301241

PATIENT
  Age: 58 Year
  Sex: Male
  Weight: 85.9 kg

DRUGS (1)
  1. PEMBROLIZUMAB [Suspect]
     Active Substance: PEMBROLIZUMAB
     Indication: Non-small cell lung cancer metastatic
     Dates: start: 202007, end: 20250612

REACTIONS (10)
  - Skin toxicity [Recovering/Resolving]
  - Product use issue [Unknown]
  - Malignant pleural effusion [Unknown]
  - Pruritus [Not Recovered/Not Resolved]
  - Colon cancer [Unknown]
  - Malignant neoplasm progression [Unknown]
  - Skin toxicity [Unknown]
  - Blister [Not Recovered/Not Resolved]
  - Hyperkeratosis [Not Recovered/Not Resolved]
  - Erythema [Not Recovered/Not Resolved]

NARRATIVE: CASE EVENT DATE: 20200701
